FAERS Safety Report 11633159 (Version 1)
Quarter: 2015Q4

REPORT INFORMATION
  Report Type: Spontaneous
  Country: US (occurrence: None)
  Receive Date: 20151014
  Receipt Date: 20151014
  Transmission Date: 20160304
  Serious: Yes (Hospitalization, Disabling, Other)
  Sender: FDA-Public Use
  Company Number: None

PATIENT
  Age: 60 Year
  Sex: Male
  Weight: 90.72 kg

DRUGS (9)
  1. HYDROCHLOROTHIAZIDE. [Concomitant]
     Active Substance: HYDROCHLOROTHIAZIDE
  2. OMEPRAZOLE. [Concomitant]
     Active Substance: OMEPRAZOLE
  3. LISINOPRIL-HYDROCHLOROTHIAZIDE 10-12.5 MG TABLETS [Suspect]
     Active Substance: HYDROCHLOROTHIAZIDE\LISINOPRIL
     Indication: HYPERTENSION
     Dosage: 10-12.5
     Route: 048
     Dates: start: 20080201, end: 20150715
  4. ALBUTEROL. [Suspect]
     Active Substance: ALBUTEROL
  5. PRIMIDONE. [Concomitant]
     Active Substance: PRIMIDONE
  6. CYANOCOBALAMIN. [Concomitant]
     Active Substance: CYANOCOBALAMIN
  7. GABAPENTIN. [Concomitant]
     Active Substance: GABAPENTIN
  8. SPIRIVA [Concomitant]
     Active Substance: TIOTROPIUM BROMIDE MONOHYDRATE
  9. TERAZOSIN [Concomitant]
     Active Substance: TERAZOSIN\TERAZOSIN HYDROCHLORIDE

REACTIONS (2)
  - Macular degeneration [None]
  - Anaphylactic shock [None]

NARRATIVE: CASE EVENT DATE: 20150715
